FAERS Safety Report 4384992-5 (Version None)
Quarter: 2004Q2

REPORT INFORMATION
  Report Type: 
  Country: None (occurrence: None)
  Receive Date: 20040607
  Receipt Date: 20030409
  Transmission Date: 20050107
  Serious: Yes (Life-Threatening, Hospitalization)
  Sender: FDA-Public Use
  Company Number: 335833

PATIENT
  Age: 16 Year
  Sex: Female

DRUGS (1)
  1. ACCUTANE [Suspect]
     Indication: ACNE
     Dosage: 20 MG 1 PER ONE SOSE ORAL
     Route: 048
     Dates: start: 20030408, end: 20030409

REACTIONS (1)
  - ANAPHYLACTIC REACTION [None]
